FAERS Safety Report 25094266 (Version 2)
Quarter: 2025Q3

REPORT INFORMATION
  Report Type: Spontaneous
  Country: EU (occurrence: EU)
  Receive Date: 20250319
  Receipt Date: 20250802
  Transmission Date: 20251021
  Serious: Yes (Hospitalization, Other)
  Sender: ALEXION PHARMACEUTICALS
  Company Number: EU-ASTRAZENECA-202503GLO014352ES

PATIENT
  Age: 69 Year
  Sex: Female

DRUGS (4)
  1. QUETIAPINE FUMARATE [Suspect]
     Active Substance: QUETIAPINE FUMARATE
     Indication: Schizoaffective disorder
     Dosage: 300 MILLIGRAM, QD
     Route: 065
  2. VALPROIC ACID [Suspect]
     Active Substance: VALPROIC ACID
     Indication: Schizoaffective disorder
     Dosage: 700 MILLIGRAM, QD
     Route: 065
  3. PALIPERIDONE [Suspect]
     Active Substance: PALIPERIDONE
     Indication: Schizoaffective disorder
     Dosage: 6 MILLIGRAM, QD
     Route: 065
  4. ZUCLOPENTHIXOL [Suspect]
     Active Substance: ZUCLOPENTHIXOL
     Indication: Schizoaffective disorder
     Route: 065

REACTIONS (1)
  - Cardio-respiratory arrest [Recovered/Resolved]
